FAERS Safety Report 5300313-5 (Version None)
Quarter: 2007Q2

REPORT INFORMATION
  Report Type: 
  Country: None (occurrence: None)
  Receive Date: 20070418
  Receipt Date: 20070409
  Transmission Date: 20071010
  Serious: Yes (Other)
  Sender: FDA-Public Use
  Company Number: PHEH2007US04665

PATIENT
  Age: 65 Year
  Sex: Female

DRUGS (2)
  1. ZOMETA [Suspect]
     Indication: OSTEOPOROSIS
  2. AREDIA [Suspect]
     Indication: OSTEOPOROSIS

REACTIONS (3)
  - ENDODONTIC PROCEDURE [None]
  - OSTEONECROSIS [None]
  - PAIN [None]
